FAERS Safety Report 11195258 (Version 1)
Quarter: 2015Q2

REPORT INFORMATION
  Report Type: Report from Study
  Country: US (occurrence: None)
  Receive Date: 20150603
  Receipt Date: 20150603
  Transmission Date: 20150821
  Serious: No
  Sender: FDA-Public Use
  Company Number: 2014TASUS000613

PATIENT
  Age: 53 Year
  Sex: Female

DRUGS (17)
  1. VITAMIN D3 [Concomitant]
     Active Substance: CHOLECALCIFEROL
  2. HETLIOZ [Suspect]
     Active Substance: TASIMELTEON
     Indication: CIRCADIAN RHYTHM SLEEP DISORDER
     Route: 048
     Dates: start: 20141017
  3. SENNA LAX (SENNOSIDE A+B) [Concomitant]
  4. PERI-COLACE (CASANTHRANOL, DOCUSATE SODIUM) [Concomitant]
  5. CLONAZEPAM. [Concomitant]
     Active Substance: CLONAZEPAM
  6. POLYTRIM (POLYMYXIN B SULFATE, TRIMETHOPRIM) [Concomitant]
  7. GENTEAL (HYPROMELLOSE) [Concomitant]
  8. VOLTAREN [Concomitant]
     Active Substance: DICLOFENAC SODIUM
  9. OXYCODONE [Concomitant]
     Active Substance: OXYCODONE
  10. ARTIFICIAL TEARS (HYPROMELLOSE) [Concomitant]
  11. LEVOTHYROXINE (LEVOTHYROXINE SODIUM) [Concomitant]
  12. HALDOL (HALOPERIDOL) [Concomitant]
  13. XGEVA [Concomitant]
     Active Substance: DENOSUMAB
  14. LIPITOR [Concomitant]
     Active Substance: ATORVASTATIN CALCIUM
  15. TOPIRAMATE. [Concomitant]
     Active Substance: TOPIRAMATE
  16. BENZOYL PEROXIDE. [Concomitant]
     Active Substance: BENZOYL PEROXIDE
  17. ACIDOPHILUS PROBIOTIC (LACTOBACILLUS ACIDOPHILUS) [Concomitant]

REACTIONS (3)
  - Insomnia [None]
  - Drug effect decreased [None]
  - Headache [None]

NARRATIVE: CASE EVENT DATE: 20141207
